FAERS Safety Report 7584762-0 (Version None)
Quarter: 2011Q2

REPORT INFORMATION
  Report Type: 
  Country: None (occurrence: None)
  Receive Date: 20110630
  Receipt Date: 20110620
  Transmission Date: 20111010
  Serious: Yes (Hospitalization)
  Sender: FDA-Public Use
  Company Number: PHHY2011JP52589

PATIENT
  Age: 46 Year
  Sex: Female

DRUGS (2)
  1. CARTEOLOL HYDROCHLORIDE [Suspect]
     Indication: GLAUCOMA
     Dosage: UNK UKN, UNK
     Route: 047
  2. TAFLUPROST [Suspect]
     Dosage: UNK UKN, UNK
     Route: 047

REACTIONS (3)
  - SYNCOPE [None]
  - DIZZINESS [None]
  - PNEUMONIA [None]
